FAERS Safety Report 20148147 (Version 1)
Quarter: 2021Q4

REPORT INFORMATION
  Report Type: Spontaneous
  Country: IT (occurrence: IT)
  Receive Date: 20211204
  Receipt Date: 20211204
  Transmission Date: 20220303
  Serious: Yes (Other)
  Sender: FDA-Public Use
  Company Number: None

PATIENT
  Age: 78 Year
  Sex: Male

DRUGS (3)
  1. ASPIRIN [Suspect]
     Active Substance: ASPIRIN
     Dosage: UNK
  2. CLOPIDOGREL BISULFATE [Suspect]
     Active Substance: CLOPIDOGREL BISULFATE
     Dosage: UNK (IINTERACTING DRUGS)
  3. TICAGRELOR [Concomitant]
     Active Substance: TICAGRELOR

REACTIONS (2)
  - Rectal haemorrhage [Unknown]
  - Drug interaction [Unknown]

NARRATIVE: CASE EVENT DATE: 20211123
